FAERS Safety Report 11755353 (Version 7)
Quarter: 2017Q2

REPORT INFORMATION
  Report Type: Spontaneous
  Country: US (occurrence: US)
  Receive Date: 20151119
  Receipt Date: 20170615
  Transmission Date: 20170829
  Serious: Yes (Other)
  Sender: FDA-Public Use
  Company Number: US-BAYER-2015-466546

PATIENT
  Age: 36 Year
  Sex: Male

DRUGS (3)
  1. KOGENATE FS [Suspect]
     Active Substance: ANTIHEMOPHILIC FACTOR, HUMAN RECOMBINANT
     Indication: FACTOR VIII DEFICIENCY
     Dosage: 3000 U, QOD
     Route: 042
     Dates: start: 20131217
  2. KOGENATE FS [Suspect]
     Active Substance: ANTIHEMOPHILIC FACTOR, HUMAN RECOMBINANT
     Indication: FACTOR VIII DEFICIENCY
     Dosage: 3000 U, DAILY PRN BLEED
     Route: 042
  3. KOGENATE FS [Suspect]
     Active Substance: ANTIHEMOPHILIC FACTOR, HUMAN RECOMBINANT
     Indication: FACTOR VIII DEFICIENCY
     Dosage: 3000 U, QOD
     Route: 042
     Dates: start: 20160815, end: 20161013

REACTIONS (10)
  - Treatment noncompliance [None]
  - Product availability issue [None]
  - Haemarthrosis [Not Recovered/Not Resolved]
  - Treatment noncompliance [None]
  - Treatment noncompliance [None]
  - Haemorrhage [None]
  - Haemorrhage [None]
  - Treatment noncompliance [None]
  - Haemarthrosis [None]
  - Treatment noncompliance [None]

NARRATIVE: CASE EVENT DATE: 201510
